FAERS Safety Report 19866181 (Version 2)
Quarter: 2021Q4

REPORT INFORMATION
  Report Type: Spontaneous
  Country: RU (occurrence: RU)
  Receive Date: 20210921
  Receipt Date: 20211001
  Transmission Date: 20220303
  Serious: Yes (Other)
  Sender: FDA-Public Use
  Company Number: RU-SA-2021SA294187

PATIENT
  Age: 3 Year
  Sex: Male
  Weight: 18 kg

DRUGS (6)
  1. CLOBAZAM [Suspect]
     Active Substance: CLOBAZAM
     Indication: Epilepsy
     Dosage: 2.5 MG, BID
     Route: 048
     Dates: start: 202105, end: 202106
  2. CLOBAZAM [Suspect]
     Active Substance: CLOBAZAM
     Dosage: 2.5 MG, BID
     Route: 048
     Dates: start: 202107
  3. CLOBAZAM [Suspect]
     Active Substance: CLOBAZAM
     Dosage: 2.5 MG, BID
     Route: 048
     Dates: start: 202109, end: 20210912
  4. CLOBAZAM [Suspect]
     Active Substance: CLOBAZAM
     Dosage: UNK  2.5 MG IN THE MORNING AND 5 MG IN THE EVENING
     Route: 048
     Dates: start: 20210913
  5. TOPAMAX [Concomitant]
     Active Substance: TOPIRAMATE
     Indication: Product used for unknown indication
     Dosage: UNK
     Route: 065
  6. VALPROIC ACID [Concomitant]
     Active Substance: VALPROIC ACID
     Indication: Product used for unknown indication
     Dosage: UNK
     Route: 065

REACTIONS (4)
  - Seizure [Recovering/Resolving]
  - Product physical issue [Unknown]
  - Drug ineffective [Unknown]
  - Wrong technique in product usage process [Unknown]
